FAERS Safety Report 19867572 (Version 1)
Quarter: 2021Q3

REPORT INFORMATION
  Report Type: Spontaneous
  Country: US (occurrence: US)
  Receive Date: 20210922
  Receipt Date: 20210922
  Transmission Date: 20211014
  Serious: Yes (Other)
  Sender: FDA-Public Use
  Company Number: US-HIKMA PHARMACEUTICALS USA INC.-US-H14001-21-03777

PATIENT
  Age: 82 Year
  Sex: Female

DRUGS (3)
  1. MORPHINE SULFATE. [Suspect]
     Active Substance: MORPHINE SULFATE
     Indication: AGITATION
  2. MORPHINE SULFATE. [Suspect]
     Active Substance: MORPHINE SULFATE
     Indication: WOUND
     Dosage: ABOUT ? OF A 0.25ML
     Route: 048
     Dates: start: 202108
  3. MORPHINE SULFATE. [Suspect]
     Active Substance: MORPHINE SULFATE
     Indication: PAIN
     Dosage: ABOUT ? OF A 0.25ML
     Route: 048
     Dates: start: 202108

REACTIONS (3)
  - Hypersomnia [Unknown]
  - Drug diversion [Unknown]
  - Suspected product tampering [Unknown]
